FAERS Safety Report 10168845 (Version 1)
Quarter: 2014Q2

REPORT INFORMATION
  Report Type: Spontaneous
  Country: US (occurrence: None)
  Receive Date: 20140509
  Receipt Date: 20140509
  Transmission Date: 20141212
  Serious: Yes (Hospitalization)
  Sender: FDA-Public Use
  Company Number: UTC-048052

PATIENT
  Age: 52 Year
  Sex: Female
  Weight: 97.5 kg

DRUGS (3)
  1. REMODULIN (5 MILLIGRAM/MILLILITERS, INJECTION FOR INFUSION (TREPROSTINIL SODIUM) [Suspect]
     Indication: PULMONARY ARTERIAL HYPERTENSION
     Route: 041
     Dates: start: 20091003
  2. COUMADIN (WARFARIN SODIUIM) [Concomitant]
  3. VIAGRA  (SILDENAFIL) [Concomitant]

REACTIONS (1)
  - Exercise tolerance decreased [None]
